FAERS Safety Report 6087499-2 (Version None)
Quarter: 2009Q1

REPORT INFORMATION
  Report Type: 
  Country: None (occurrence: None)
  Receive Date: 20090223
  Receipt Date: 20090210
  Transmission Date: 20090719
  Serious: Yes (Hospitalization, Congenital Anomaly)
  Sender: FDA-Public Use
  Company Number: SE-ELI_LILLY_AND_COMPANY-SE200902002356

PATIENT
  Sex: Female

DRUGS (9)
  1. ZYPREXA [Suspect]
     Route: 064
  2. PROPAVAN [Concomitant]
     Route: 064
  3. DIKLOFENAK [Concomitant]
     Route: 064
  4. NOZINAN [Concomitant]
     Route: 064
  5. TOLVON [Concomitant]
     Route: 064
  6. ACETAMINOPHEN W/ CODEINE [Concomitant]
     Route: 064
  7. DIAZEPAM [Concomitant]
     Route: 064
  8. LAMICTAL [Concomitant]
     Route: 064
  9. ZOPIKLON [Concomitant]
     Route: 064

REACTIONS (6)
  - DRUG EXPOSURE DURING PREGNANCY [None]
  - HEART DISEASE CONGENITAL [None]
  - HYPOKINESIA [None]
  - MOEBIUS II SYNDROME [None]
  - POLAND'S SYNDROME [None]
  - TALIPES [None]
